FAERS Safety Report 18051909 (Version 1)
Quarter: 2020Q3

REPORT INFORMATION
  Report Type: Spontaneous
  Country: KR (occurrence: KR)
  Receive Date: 20200721
  Receipt Date: 20200721
  Transmission Date: 20201103
  Serious: Yes (Life-Threatening, Hospitalization)
  Sender: FDA-Public Use
  Company Number: KR-CELGENEUS-KOR-20190403057

PATIENT
  Age: 55 Year
  Sex: Male

DRUGS (6)
  1. NAPABUCASIN [Concomitant]
     Active Substance: NAPABUCASIN
     Indication: PANCREATIC CARCINOMA METASTATIC
     Dosage: 480 MILLIGRAM
     Route: 048
     Dates: start: 20190116
  2. ABRAXANE [Suspect]
     Active Substance: PACLITAXEL
     Indication: PANCREATIC CARCINOMA METASTATIC
     Route: 041
     Dates: start: 20190118, end: 20190320
  3. NAPABUCASIN [Concomitant]
     Active Substance: NAPABUCASIN
     Dosage: 160 MILLIGRAM
     Route: 048
     Dates: start: 20190510
  4. NAPABUCASIN [Concomitant]
     Active Substance: NAPABUCASIN
     Dosage: 160 MILLIGRAM
     Route: 048
     Dates: end: 20190321
  5. SMOFKABIVEN [Concomitant]
     Active Substance: AMINO ACIDS\DEXTROSE\ELECTROLYTES NOS\SOYBEAN OIL
     Indication: PRODUCT USED FOR UNKNOWN INDICATION
     Dosage: 968 MILLILITER
     Route: 041
     Dates: start: 20190423, end: 20190424
  6. GEMCITABINE. [Concomitant]
     Active Substance: GEMCITABINE
     Indication: PANCREATIC CARCINOMA METASTATIC
     Route: 041
     Dates: start: 20190118, end: 20190320

REACTIONS (3)
  - Asthenia [Recovered/Resolved]
  - Pneumonia [Recovered/Resolved]
  - Febrile neutropenia [Recovered/Resolved]

NARRATIVE: CASE EVENT DATE: 20190324
